FAERS Safety Report 10231353 (Version 3)
Quarter: 2014Q2

REPORT INFORMATION
  Report Type: Spontaneous
  Country: PL (occurrence: PL)
  Receive Date: 20140611
  Receipt Date: 20140623
  Transmission Date: 20141212
  Serious: Yes (Hospitalization, Other)
  Sender: FDA-Public Use
  Company Number: PL-B.I. PHARMACEUTICALS,INC./RIDGEFIELD-2014-BI-25910PN

PATIENT
  Age: 63 Year
  Sex: Male

DRUGS (6)
  1. PRADAXA [Suspect]
     Indication: ATRIAL FIBRILLATION
     Dosage: 150 MG
     Route: 048
     Dates: start: 201310, end: 201406
  2. TRITACE [Concomitant]
     Route: 065
  3. FUROSEMID [Concomitant]
     Route: 065
  4. BISOCARD [Concomitant]
     Route: 065
  5. SPIRONOL [Concomitant]
     Route: 065
  6. ATORIS [Concomitant]
     Route: 065

REACTIONS (1)
  - Mesenteric artery embolism [Not Recovered/Not Resolved]
